FAERS Safety Report 5467478-6 (Version None)
Quarter: 2007Q3

REPORT INFORMATION
  Report Type: 
  Country: None (occurrence: None)
  Receive Date: 20070925
  Receipt Date: 20070913
  Transmission Date: 20080115
  Serious: Yes (Hospitalization, Other)
  Sender: FDA-Public Use
  Company Number: US-PFIZER INC-2007078255

PATIENT
  Weight: 66.2 kg

DRUGS (13)
  1. CHANTIX [Suspect]
     Indication: SMOKING CESSATION THERAPY
  2. NEXIUM [Concomitant]
  3. POTASSIUM CHLORIDE [Concomitant]
  4. FEXOFENADINE [Concomitant]
  5. METOPROLOL [Concomitant]
  6. CLONIDINE [Concomitant]
  7. COZAAR [Concomitant]
  8. LEXAPRO [Concomitant]
  9. CLORAZEPATE [Concomitant]
  10. ADVAIR DISKUS 100/50 [Concomitant]
  11. COMBIVENT [Concomitant]
  12. SPIRIVA [Concomitant]
  13. DUONEB [Concomitant]

REACTIONS (2)
  - ABASIA [None]
  - CONSTIPATION [None]
